FAERS Safety Report 7834878 (Version 4)
Quarter: 2012Q4

REPORT INFORMATION
  Report Type: Report from Study
  Country: TZ (occurrence: TZ)
  Receive Date: 20110301
  Receipt Date: 20121017
  Transmission Date: 20130627
  Serious: Yes (Death, Hospitalization, Other)
  Sender: FDA-Public Use
  Company Number: TZ-SANOFI-AVENTIS-2011SA011320

PATIENT
  Age: 38 Year
  Sex: Male
  Weight: 45 kg

DRUGS (8)
  1. RIFAMPICIN [Suspect]
     Indication: PULMONARY TUBERCULOSIS
     Route: 065
     Dates: start: 20110121
  2. ISONIAZID [Suspect]
     Indication: PULMONARY TUBERCULOSIS
     Route: 065
     Dates: start: 20110121
  3. ETHAMBUTOL [Suspect]
     Indication: PULMONARY TUBERCULOSIS
     Route: 065
     Dates: start: 20110121
  4. PYRAZINAMIDE [Suspect]
     Indication: PULMONARY TUBERCULOSIS
     Route: 065
     Dates: start: 20110121
  5. MOXIFLOXACIN [Suspect]
     Indication: PULMONARY TUBERCULOSIS
     Route: 065
     Dates: start: 20110121
  6. HYDROCORTISONE [Concomitant]
  7. CEFTRIAXONE [Concomitant]
  8. METRONIDAZOLE [Concomitant]

REACTIONS (3)
  - Dyspnoea [Fatal]
  - Dyspnoea [Fatal]
  - Nausea [Not Recovered/Not Resolved]
